FAERS Safety Report 14481700 (Version 1)
Quarter: 2018Q1

REPORT INFORMATION
  Report Type: Spontaneous
  Country: US (occurrence: US)
  Receive Date: 20180202
  Receipt Date: 20180202
  Transmission Date: 20180509
  Serious: Yes (Hospitalization, Other)
  Sender: FDA-Public Use
  Company Number: None

PATIENT
  Age: 60 Year
  Sex: Female
  Weight: 70.31 kg

DRUGS (18)
  1. BUDESONIDE. [Concomitant]
     Active Substance: BUDESONIDE
  2. VITAMIN B12 [Concomitant]
     Active Substance: CYANOCOBALAMIN
  3. VITAMIN B-4 [Concomitant]
  4. CLONAZEPAM. [Concomitant]
     Active Substance: CLONAZEPAM
  5. SINGULAIR [Concomitant]
     Active Substance: MONTELUKAST SODIUM
  6. (RINSE-NASAL) [Concomitant]
  7. VITAMIN D [Concomitant]
     Active Substance: CHOLECALCIFEROL
  8. CALCIUM [Concomitant]
     Active Substance: CALCIUM
  9. BIOTIN [Concomitant]
     Active Substance: BIOTIN
  10. VITAMIN A [Concomitant]
     Active Substance: VITAMIN A
  11. VITAMIN C [Concomitant]
     Active Substance: ASCORBIC ACID
  12. METRONIDAZOLE VAGINAL GEL 0.75% [Suspect]
     Active Substance: METRONIDAZOLE
     Indication: BACTERIAL VAGINOSIS
     Dosage: DOSE - 1 APPLICATOR FULL?FREQUENCY - 1 DAILY AT BEDTIME
     Route: 067
     Dates: start: 20170320, end: 20170821
  13. MAGNESIUM [Concomitant]
     Active Substance: MAGNESIUM
  14. BUPROPION. [Concomitant]
     Active Substance: BUPROPION
  15. FOLIC ACID. [Concomitant]
     Active Substance: FOLIC ACID
  16. PROAIR HFA [Concomitant]
     Active Substance: ALBUTEROL SULFATE
  17. VITAMIN B6 [Concomitant]
     Active Substance: PYRIDOXINE HYDROCHLORIDE
  18. FISH OIL [Concomitant]
     Active Substance: FISH OIL

REACTIONS (13)
  - Balance disorder [None]
  - Gait inability [None]
  - Alcohol use [None]
  - Dyspnoea [None]
  - Haemorrhage [None]
  - Haemarthrosis [None]
  - Heart rate decreased [None]
  - Joint injury [None]
  - Syncope [None]
  - Fatigue [None]
  - Loss of consciousness [None]
  - Yawning [None]
  - Limb injury [None]

NARRATIVE: CASE EVENT DATE: 20160303
